FAERS Safety Report 5702179-8 (Version None)
Quarter: 2008Q2

REPORT INFORMATION
  Report Type: 
  Country: None (occurrence: None)
  Receive Date: 20080411
  Receipt Date: 20080401
  Transmission Date: 20081010
  Serious: Yes (Other)
  Sender: FDA-Public Use
  Company Number: US-AMGEN-QUU272503

PATIENT
  Sex: Female

DRUGS (2)
  1. ENBREL [Suspect]
     Indication: RHEUMATOID ARTHRITIS
     Route: 058
     Dates: start: 20021201
  2. ARAVA [Concomitant]
     Route: 048
     Dates: start: 20010101

REACTIONS (4)
  - BONE DISORDER [None]
  - ERYTHEMA [None]
  - IMPAIRED HEALING [None]
  - INFECTION [None]
